FAERS Safety Report 4595594-X (Version None)
Quarter: 2005Q1

REPORT INFORMATION
  Report Type: 
  Country: None (occurrence: None)
  Receive Date: 20050228
  Receipt Date: 20050228
  Transmission Date: 20050727
  Serious: Yes (Other)
  Sender: FDA-Public Use
  Company Number: None

PATIENT
  Age: 43 Year
  Sex: Male
  Weight: 75 kg

DRUGS (4)
  1. SEROQUEL [Suspect]
     Indication: SCHIZOPHRENIA, PARANOID TYPE
     Dosage: 100 MG PO BID
     Route: 048
     Dates: start: 20040831, end: 20041028
  2. DIVALPROEX SODIUM [Concomitant]
  3. FLUPHENAZINE [Concomitant]
  4. RISPERIDONE [Concomitant]

REACTIONS (1)
  - CATARACT [None]
